FAERS Safety Report 15479486 (Version 1)
Quarter: 2018Q4

REPORT INFORMATION
  Report Type: Spontaneous
  Country: US (occurrence: US)
  Receive Date: 20181009
  Receipt Date: 20181009
  Transmission Date: 20190205
  Serious: No
  Sender: FDA-Public Use
  Company Number: US-SAGENT PHARMACEUTICALS-2017SAG000901

PATIENT

DRUGS (1)
  1. NAFCILLIN SODIUM. [Suspect]
     Active Substance: NAFCILLIN SODIUM
     Indication: PRODUCT USED FOR UNKNOWN INDICATION
     Dosage: UNK
     Dates: start: 20171031, end: 20171031

REACTIONS (4)
  - Hypersensitivity [Recovered/Resolved]
  - Burning sensation [Recovered/Resolved]
  - Sneezing [Recovered/Resolved]
  - Pruritus [Recovered/Resolved]

NARRATIVE: CASE EVENT DATE: 20171031
